FAERS Safety Report 25798054 (Version 1)
Quarter: 2025Q3

REPORT INFORMATION
  Report Type: Spontaneous
  Country: TR (occurrence: TR)
  Receive Date: 20250912
  Receipt Date: 20250912
  Transmission Date: 20251020
  Serious: Yes (Death, Hospitalization)
  Sender: NOVARTIS
  Company Number: TR-002147023-NVSC2025TR140918

PATIENT
  Age: 3 Year
  Sex: Female

DRUGS (1)
  1. ZOLGENSMA [Suspect]
     Active Substance: ONASEMNOGENE ABEPARVOVEC-XIOI
     Indication: Spinal muscular atrophy
     Route: 042

REACTIONS (6)
  - Pneumonia [Fatal]
  - Coma [Fatal]
  - Weight decreased [Fatal]
  - Septic shock [Fatal]
  - Contusion [Fatal]
  - Device malfunction [Fatal]

NARRATIVE: CASE EVENT DATE: 20250217
